FAERS Safety Report 7980885-2 (Version None)
Quarter: 2011Q4

REPORT INFORMATION
  Report Type: 
  Country: None (occurrence: None)
  Receive Date: 20111214
  Receipt Date: 20111205
  Transmission Date: 20120403
  Serious: Yes (Hospitalization)
  Sender: FDA-Public Use
  Company Number: JP-BRISTOL-MYERS SQUIBB COMPANY-15314958

PATIENT
  Age: 77 Year
  Sex: Female

DRUGS (7)
  1. RINDERON-VG [Concomitant]
  2. ALLEGRA [Concomitant]
  3. LIPITOR [Concomitant]
  4. IRBESARTAN [Suspect]
     Indication: HYPERTENSION
     Dosage: TABS
     Route: 048
     Dates: start: 20100519
  5. FOIPAN [Concomitant]
  6. ZOLPIDEM [Concomitant]
  7. KETOPROFEN [Concomitant]

REACTIONS (3)
  - SYSTEMIC LUPUS ERYTHEMATOSUS [None]
  - PROTEINURIA [None]
  - PYREXIA [None]
